FAERS Safety Report 5601983-4 (Version None)
Quarter: 2008Q1

REPORT INFORMATION
  Report Type: 
  Country: None (occurrence: None)
  Receive Date: 20080122
  Receipt Date: 20080110
  Transmission Date: 20080703
  Serious: Yes (Death, Congenital Anomaly)
  Sender: FDA-Public Use
  Company Number: 2008AP000154

PATIENT

DRUGS (1)
  1. PAROXETINE HYDROCHLORIDE [Suspect]
     Dosage: TRPL
     Route: 064

REACTIONS (3)
  - CONGENITAL AORTIC STENOSIS [None]
  - DRUG EXPOSURE DURING PREGNANCY [None]
  - HEART DISEASE CONGENITAL [None]
